FAERS Safety Report 25083370 (Version 1)
Quarter: 2025Q1

REPORT INFORMATION
  Report Type: Spontaneous
  Country: US (occurrence: US)
  Receive Date: 20250317
  Receipt Date: 20250317
  Transmission Date: 20250409
  Serious: Yes (Other)
  Sender: BAYER HEALTHCARE PHARMACEUTICALS INC.
  Company Number: US-BAYER-2025A032097

PATIENT
  Age: 38 Year
  Sex: Female

DRUGS (7)
  1. MIRENA [Suspect]
     Active Substance: LEVONORGESTREL
     Indication: Heavy menstrual bleeding
     Dosage: 20?G/DAY
     Route: 015
     Dates: start: 20200202
  2. CELLCEPT [Concomitant]
     Active Substance: MYCOPHENOLATE MOFETIL
     Indication: Organ transplant
     Dates: start: 20210714
  3. ENVARSUS XR [Concomitant]
     Active Substance: TACROLIMUS
     Indication: Organ transplant
     Dates: start: 20210714
  4. PREDNISONE [Concomitant]
     Active Substance: PREDNISONE
     Indication: Organ transplant
     Dates: start: 20210714
  5. MIRAPEX [Concomitant]
     Active Substance: PRAMIPEXOLE DIHYDROCHLORIDE
     Indication: Paratyphoid fever
     Dates: start: 20170101
  6. SENSIPAR [Concomitant]
     Active Substance: CINACALCET HYDROCHLORIDE
     Indication: Hyperparathyroidism
     Dates: start: 20160101
  7. SODIUM BICARBONATE [Concomitant]
     Active Substance: SODIUM BICARBONATE
     Indication: Organ preservation

REACTIONS (5)
  - Systemic lupus erythematosus [None]
  - Renal transplant [None]
  - Pyrexia [Recovered/Resolved]
  - Pyrexia [Recovered/Resolved]
  - Immune system disorder [None]

NARRATIVE: CASE EVENT DATE: 20210714
